FAERS Safety Report 8955731 (Version 2)
Quarter: 2013Q1

REPORT INFORMATION
  Report Type: Report from Study
  Country: JP (occurrence: JP)
  Receive Date: 20121210
  Receipt Date: 20130304
  Transmission Date: 20140127
  Serious: Yes (Other)
  Sender: FDA-Public Use
  Company Number: JP-009507513-1212JPN002600

PATIENT
  Age: 68 Year
  Sex: Male
  Weight: 68 kg

DRUGS (13)
  1. PEGINTRON [Suspect]
     Indication: CHRONIC HEPATITIS C
     Dosage: DOSAGE: 1.5 MCG/KG/WEEK, DAILY DOSE UNKNOWN
     Route: 058
     Dates: start: 20120814, end: 20120918
  2. PEGINTRON [Suspect]
     Dosage: DOSAGE: 60 MCG/KG/WEEK, DAILY DOSE UNKNOWN
     Route: 058
     Dates: start: 20120925, end: 20120925
  3. PEGINTRON [Suspect]
     Dosage: DOSAGE: 40 MCG/KG/WK, DAILY DOSE UNKNOWN
     Route: 058
     Dates: start: 20121002, end: 20121009
  4. REBETOL [Suspect]
     Indication: CHRONIC HEPATITIS C
     Dosage: 800 MG, QD
     Route: 048
     Dates: start: 20120814, end: 20120910
  5. REBETOL [Suspect]
     Dosage: 600 MG, QD
     Route: 048
     Dates: start: 20120911, end: 20120924
  6. REBETOL [Suspect]
     Dosage: 400 MG, QD
     Route: 048
     Dates: start: 20120925, end: 20121015
  7. TELAVIC [Suspect]
     Indication: CHRONIC HEPATITIS C
     Dosage: 2250 MG, QD
     Route: 048
     Dates: start: 20120814, end: 20120827
  8. TELAVIC [Suspect]
     Dosage: 1500 MG, QD
     Route: 048
     Dates: start: 20120828, end: 20120924
  9. TELAVIC [Suspect]
     Dosage: 1000 MG, QD
     Route: 048
     Dates: start: 20120925, end: 20121015
  10. MAINTATE [Concomitant]
     Indication: HYPERTENSION
     Dosage: 10 MG, QD
     Route: 048
  11. PURSENNID (SENNOSIDES) [Concomitant]
     Indication: CONSTIPATION
     Dosage: 12 MG, QD,FORMULATION:POR
     Route: 048
  12. GASMOTIN [Concomitant]
     Indication: PROPHYLAXIS
     Dosage: 15 MG, QD,FORMULATION POR
     Route: 048
     Dates: start: 20120817, end: 20121112
  13. GASTER D [Concomitant]
     Indication: PROPHYLAXIS
     Dosage: 20 MG, QD,FORMULATION:POR
     Route: 048
     Dates: start: 20120911, end: 20121112

REACTIONS (2)
  - Delirium [Recovered/Resolved]
  - Delirium [Not Recovered/Not Resolved]
